FAERS Safety Report 8187591-2 (Version None)
Quarter: 2012Q1

REPORT INFORMATION
  Report Type: 
  Country: None (occurrence: None)
  Receive Date: 20120302
  Receipt Date: 20120217
  Transmission Date: 20120608
  Serious: Yes (Death, Hospitalization)
  Sender: FDA-Public Use
  Company Number: 2012HGS-003214

PATIENT
  Age: 36 Year
  Sex: Female
  Weight: 81.6475 kg

DRUGS (29)
  1. BENLYSTA [Suspect]
     Indication: CUTANEOUS LUPUS ERYTHEMATOSUS
     Dosage: 10 MG/KG, 1 IN 28 D, INTRAVENOUS DRIP
     Route: 041
     Dates: start: 20120110, end: 20120110
  2. METOPROLOL XL (METOPROLOL) (METOPROLOL) [Concomitant]
  3. PLAQUENIL [Concomitant]
  4. HYDROXYZINE [Concomitant]
  5. VITAMIN C (ASCORBIC ACID)(ASCORBIC ACID) [Concomitant]
  6. VYVANSE (LISDEXAMFETAMINE MESILATE)(LISDEXAMFETAMINE MESILATE) [Concomitant]
  7. POTASSIUM SUPPLEMENT (POTASSIUM CHLORIDE) (POTASSIUM CHLORIDE) [Concomitant]
  8. MYCOPHENOLATE (MYCOPHENOLATE MOFETIL)(MYCOPHENOLATE MOFETIL) [Concomitant]
  9. ACYCLOVIR (ACICLOVIR)(ACICLOVIR) [Concomitant]
  10. HYOMAX (HYOSCYAMINE SULFATE)(HYOSCYAMINE SULFATE) [Concomitant]
  11. CLORAZEPATE (CLORAZEPATE DIPOTASSIUM) (CLORAZEPATE DIPOTASSIUM) [Concomitant]
  12. ZOLOFT [Concomitant]
  13. CALCIUM CITRATE WITH VITAMIN D (CALCIUM CITRATE W/COLECALCIFEROL)(COLE [Concomitant]
  14. SINGULAIR (MONTELUKAST SODIUM)(MONTELUKAST SODIUM) [Concomitant]
  15. FLEXERIL (CYCLOBENZAPRINE HYDROCHLORIDE)(CYCLOBENZAPRINE HYDROCHLORIDE [Concomitant]
  16. PROTONIX (PANTOPRAZOLE SODIUM SESQUIHYDRATE)(PANTOPRAZOLE SODIUM SESQU [Concomitant]
  17. LASIX [Concomitant]
  18. OPANA ER (OXYMORPHONE HYDROCHLORIDE)(OXYMORPHONE HYDROCHLORIDE) [Concomitant]
  19. ASTEPRO (AZELASTINE HYDROCHLORIDE)(AZELASTINE HYDROCHLORIDE) [Concomitant]
  20. DOXYCYCLINE [Concomitant]
  21. ARMOUR THYROID (THYROID) (THYROID) [Concomitant]
  22. VIIBRYD(VILAZODONE HYDROCHLORIDE) (VILAZODONE HYDROCHLORIDE) [Concomitant]
  23. NASONEX (MOMETASONE FUROATE)(MOMETASONE FUROATE) [Concomitant]
  24. CELEBREX [Concomitant]
  25. MAG OXIDE (MAGNESIUM OXIDE)(MAGNESIUM OXIDE) [Concomitant]
  26. BACTROBAN OINTMENT(MUPIROCIN)(MUPIROCIN) [Concomitant]
  27. AMLODIPINE [Concomitant]
  28. PREDNISONE [Concomitant]
  29. LYRICA [Concomitant]

REACTIONS (9)
  - CARDIAC ARREST [None]
  - SKIN DISCOLOURATION [None]
  - LOSS OF CONSCIOUSNESS [None]
  - FALL [None]
  - DRUG SCREEN POSITIVE [None]
  - DYSPNOEA [None]
  - ASPIRATION [None]
  - HYPERSENSITIVITY [None]
  - BLOOD ALCOHOL INCREASED [None]
